FAERS Safety Report 18129765 (Version 1)
Quarter: 2020Q3

REPORT INFORMATION
  Report Type: Spontaneous
  Country: US (occurrence: US)
  Receive Date: 20200810
  Receipt Date: 20200810
  Transmission Date: 20201103
  Serious: No
  Sender: FDA-Public Use
  Company Number: US-PERRIGO-19US015987

PATIENT
  Age: 62 Year
  Sex: Female
  Weight: 77.1 kg

DRUGS (5)
  1. ZYPREXA [Concomitant]
     Active Substance: OLANZAPINE
     Indication: BIPOLAR DISORDER
     Dosage: UNK
     Route: 065
  2. EFFEXOR [Concomitant]
     Active Substance: VENLAFAXINE HYDROCHLORIDE
     Indication: BIPOLAR DISORDER
     Dosage: UNK
     Route: 065
  3. LORATADINE. [Suspect]
     Active Substance: LORATADINE
     Indication: RHINORRHOEA
     Dosage: 10 MG, SINGLE
     Route: 048
     Dates: start: 20191215, end: 20191215
  4. COGENTIN [Concomitant]
     Active Substance: BENZTROPINE MESYLATE
     Indication: BIPOLAR DISORDER
     Dosage: UNK
     Route: 065
  5. PREMARIN [Concomitant]
     Active Substance: ESTROGENS, CONJUGATED
     Indication: BIPOLAR DISORDER
     Dosage: UNK
     Route: 065

REACTIONS (1)
  - Drug ineffective [Unknown]

NARRATIVE: CASE EVENT DATE: 20191215
